FAERS Safety Report 8900605 (Version 2)
Quarter: 2013Q2

REPORT INFORMATION
  Report Type: Report from Study
  Country: DE (occurrence: DE)
  Receive Date: 20121109
  Receipt Date: 20130621
  Transmission Date: 20140414
  Serious: Yes (Death, Life-Threatening, Hospitalization)
  Sender: FDA-Public Use
  Company Number: DE-TEVA-369032USA

PATIENT
  Age: 83 Year
  Sex: Male

DRUGS (17)
  1. BENDAMUSTINE [Suspect]
     Indication: PLASMA CELL MYELOMA
     Route: 042
     Dates: start: 20100628, end: 20100824
  2. MELPHALAN [Suspect]
     Indication: PLASMA CELL MYELOMA
     Dates: start: 20060102, end: 20070102
  3. MELPHALAN [Suspect]
     Dates: start: 20090522, end: 20091218
  4. PREDNISOLON [Suspect]
     Indication: PLASMA CELL MYELOMA
     Dosage: REGIMEN 1
     Dates: start: 20060102, end: 20070102
  5. PREDNISOLON [Suspect]
     Dosage: REGIMEN 2
     Dates: start: 20090522, end: 20091218
  6. PREDNISOLON [Suspect]
     Dosage: REGIMEN 3
     Dates: start: 20100628, end: 20100824
  7. BORTEZOMIB [Suspect]
     Indication: PLASMA CELL MYELOMA
     Dates: start: 20060102, end: 20070102
  8. REVLIMID [Suspect]
     Indication: PLASMA CELL MYELOMA
     Dosage: REGIMEN ONE
     Dates: start: 20110404
  9. REVLIMID [Suspect]
     Dosage: REGIMEN 2
     Dates: start: 20110810
  10. REVLIMID [Suspect]
     Dosage: REGIMEN 3
     Dates: start: 20110920
  11. REVLIMID [Suspect]
     Dosage: REGIMEN 4
     Dates: start: 20111120
  12. DEXAMETHASON [Suspect]
     Indication: PLASMA CELL MYELOMA
     Dosage: REGIMEN ONE
     Dates: start: 20110404
  13. DEXAMETHASON [Suspect]
     Dosage: REGIMEN 2
     Dates: start: 20110810
  14. DEXAMETHASON [Suspect]
     Dosage: REGIMEN 3
     Dates: start: 20110920
  15. DEXAMETHASON [Suspect]
     Dosage: REGIMEN 4
     Dates: start: 20111120
  16. EPOETIN NOS [Concomitant]
     Dates: start: 20060101
  17. ASS [Concomitant]
     Dates: start: 200608

REACTIONS (2)
  - Renal failure [Fatal]
  - Cardiac failure [Not Recovered/Not Resolved]
